FAERS Safety Report 15971275 (Version 3)
Quarter: 2019Q3

REPORT INFORMATION
  Report Type: Spontaneous
  Country: FR (occurrence: FR)
  Receive Date: 20190215
  Receipt Date: 20190826
  Transmission Date: 20191004
  Serious: Yes (Other)
  Sender: FDA-Public Use
  Company Number: PHHY2018FR176464

PATIENT
  Age: 69 Year
  Sex: Female
  Weight: 55.6 kg

DRUGS (8)
  1. EXFORGE [Suspect]
     Active Substance: AMLODIPINE BESYLATE\VALSARTAN
     Indication: SECONDARY HYPERTENSION
     Dosage: UNK UNK, QD (IN THE MORNING)
     Route: 048
     Dates: start: 20150810, end: 201805
  2. LIPANTHYL [Concomitant]
     Active Substance: FENOFIBRATE
     Dosage: 20 OT, UNK
     Route: 065
  3. VENTOLINE [Concomitant]
     Active Substance: ALBUTEROL
     Indication: PRODUCT USED FOR UNKNOWN INDICATION
     Dosage: UNK
     Route: 065
  4. INEXIUM [Concomitant]
     Active Substance: ESOMEPRAZOLE
     Indication: PRODUCT USED FOR UNKNOWN INDICATION
     Dosage: 20 OT, UNK
     Route: 065
  5. T STAT [Concomitant]
     Indication: HYPERSENSITIVITY
     Dosage: UNK
     Route: 065
  6. LIPANTHYL [Concomitant]
     Active Substance: FENOFIBRATE
     Indication: HYPERCHOLESTEROLAEMIA
     Dosage: UNK
     Route: 065
  7. LIPANTHYL [Concomitant]
     Active Substance: FENOFIBRATE
     Dosage: 145 OT, UNK
     Route: 065
  8. EBASTINE [Concomitant]
     Active Substance: EBASTINE
     Indication: PRODUCT USED FOR UNKNOWN INDICATION
     Dosage: 10 OT, UNK
     Route: 065

REACTIONS (11)
  - Gamma-glutamyltransferase increased [Unknown]
  - Inguinal hernia [Unknown]
  - Weight decreased [Not Recovered/Not Resolved]
  - Fatigue [Not Recovered/Not Resolved]
  - Serum ferritin increased [Recovering/Resolving]
  - Transaminases increased [Unknown]
  - Decreased appetite [Unknown]
  - Eating disorder [Unknown]
  - Dyspepsia [Unknown]
  - Drug-induced liver injury [Recovering/Resolving]
  - Malaise [Unknown]

NARRATIVE: CASE EVENT DATE: 201805
